FAERS Safety Report 17176820 (Version 1)
Quarter: 2019Q4

REPORT INFORMATION
  Report Type: Spontaneous
  Country: IT (occurrence: IT)
  Receive Date: 20191219
  Receipt Date: 20191219
  Transmission Date: 20200122
  Serious: Yes (Other)
  Sender: FDA-Public Use
  Company Number: IT-SAMSUNG BIOEPIS-SB-2019-37641

PATIENT
  Age: 16 Year
  Sex: Female

DRUGS (1)
  1. FLIXABI [Suspect]
     Active Substance: INFLIXIMAB
     Indication: POLYARTHRITIS
     Dosage: TOTAL
     Route: 042
     Dates: start: 20190517, end: 20190517

REACTIONS (5)
  - Urticaria [Recovering/Resolving]
  - Cough [Recovering/Resolving]
  - Oral pruritus [Recovering/Resolving]
  - Product use in unapproved indication [Unknown]
  - Obstructive airways disorder [Recovering/Resolving]

NARRATIVE: CASE EVENT DATE: 20190517
